FAERS Safety Report 8962077 (Version 1)
Quarter: 2012Q4

REPORT INFORMATION
  Report Type: 
  Country: US (occurrence: US)
  Receive Date: 20121212
  Receipt Date: 20121212
  Transmission Date: 20130627
  Serious: No
  Sender: FDA-Public Use
  Company Number: US-PFIZER INC-2012308499

PATIENT
  Age: 37 Year
  Sex: Female
  Weight: 57.6 kg

DRUGS (4)
  1. AZITHROMYCIN [Suspect]
     Indication: UPPER RESPIRATORY TRACT INFECTION
     Dosage: 250 mg, 1x/day
     Dates: end: 2011
  2. NEXIUM [Concomitant]
     Dosage: UNK
  3. FLOVENT [Concomitant]
     Dosage: UNK
  4. VICODIN [Concomitant]
     Indication: ARTHRITIC PAINS
     Dosage: UNK, 2x/day

REACTIONS (3)
  - Hypersensitivity [Recovered/Resolved]
  - Vomiting [Recovered/Resolved]
  - Rash [Recovered/Resolved]
